FAERS Safety Report 15609181 (Version 1)
Quarter: 2018Q4

REPORT INFORMATION
  Report Type: Other
  Country: US (occurrence: US)
  Receive Date: 20181112
  Receipt Date: 20181112
  Transmission Date: 20190205
  Serious: Yes (Life-Threatening)
  Sender: FDA-Public Use
  Company Number: US-STANDARD HOMEOPATHIC COMPANY-2058747

PATIENT
  Age: 70 Year
  Sex: Female

DRUGS (1)
  1. ARNICA MONTANA 30X LOT B36817 NDC 622022903?CALCAREA FLUOR 30X LOT A94 [Suspect]
     Active Substance: HERBALS
     Route: 048
     Dates: start: 20130531

REACTIONS (1)
  - Haemorrhage [Unknown]

NARRATIVE: CASE EVENT DATE: 20130531
